FAERS Safety Report 8244911-8 (Version None)
Quarter: 2012Q1

REPORT INFORMATION
  Report Type: 
  Country: None (occurrence: None)
  Receive Date: 20120329
  Receipt Date: 20111116
  Transmission Date: 20120608
  Serious: No
  Sender: FDA-Public Use
  Company Number: US-MYLANLABS-2011S1018616

PATIENT
  Age: 90 Year
  Sex: Female
  Weight: 89.81 kg

DRUGS (7)
  1. FENTANYL-100 [Suspect]
     Indication: ARTHRITIS
     Dosage: CHANGES Q. 72 HOURS.
     Route: 062
     Dates: start: 20110816, end: 20110824
  2. EXTRA STRENGTH TYLENOL [Concomitant]
  3. FENTANYL-100 [Suspect]
     Indication: PAIN
     Dosage: CHANGES Q. 72 HOURS.
     Route: 062
     Dates: start: 20110816, end: 20110824
  4. VITAMIN TAB [Concomitant]
  5. TRAMADOL HYDROCHLORIDE AND ACETAMINOPHEN [Concomitant]
     Dosage: 37.5MG/325MG
  6. CALCIUM + VITAMIN D /01483701/ [Concomitant]
  7. ASPIRIN [Concomitant]

REACTIONS (6)
  - DECREASED APPETITE [None]
  - CONFUSIONAL STATE [None]
  - DIZZINESS [None]
  - HALLUCINATION [None]
  - INSOMNIA [None]
  - FALL [None]
